FAERS Safety Report 9199936 (Version 1)
Quarter: 2013Q1

REPORT INFORMATION
  Report Type: Spontaneous
  Country: NL (occurrence: NL)
  Receive Date: 20130329
  Receipt Date: 20130329
  Transmission Date: 20140127
  Serious: Yes (Hospitalization)
  Sender: FDA-Public Use
  Company Number: NL-TEVA-393138ISR

PATIENT
  Age: 63 Year
  Sex: Female

DRUGS (6)
  1. PREDNISOLONE [Suspect]
     Indication: TAKAYASU^S ARTERITIS
     Route: 065
  2. PREDNISONE [Interacting]
     Indication: TAKAYASU^S ARTERITIS
     Dosage: 3.75 MILLIGRAM DAILY;
     Route: 065
  3. AZATHIOPRINE [Interacting]
     Indication: TAKAYASU^S ARTERITIS
     Dosage: 100 MILLIGRAM DAILY;
     Route: 065
  4. METHOTREXATE [Suspect]
     Indication: TAKAYASU^S ARTERITIS
     Route: 065
  5. INFLIXIMAB [Interacting]
     Indication: TAKAYASU^S ARTERITIS
     Route: 065
  6. TOCILIZUMAB [Interacting]
     Indication: TAKAYASU^S ARTERITIS
     Route: 050

REACTIONS (5)
  - Lung abscess [Recovered/Resolved]
  - Streptococcal infection [Recovered/Resolved]
  - Gastrointestinal disorder [Unknown]
  - Tooth abscess [Unknown]
  - Drug interaction [Unknown]
